FAERS Safety Report 17400659 (Version 2)
Quarter: 2020Q1

REPORT INFORMATION
  Report Type: Spontaneous
  Country: US (occurrence: US)
  Receive Date: 20200211
  Receipt Date: 20200213
  Transmission Date: 20200409
  Serious: No
  Sender: FDA-Public Use
  Company Number: US-TEVA-2020-US-1181811

PATIENT
  Sex: Male

DRUGS (1)
  1. CEFADROXIL. [Suspect]
     Active Substance: CEFADROXIL
     Route: 065

REACTIONS (4)
  - Product use complaint [Unknown]
  - Foreign body in respiratory tract [Unknown]
  - Product solubility abnormal [Unknown]
  - Product quality issue [Unknown]
